FAERS Safety Report 22264230 (Version 1)
Quarter: 2023Q2

REPORT INFORMATION
  Report Type: Spontaneous
  Country: US (occurrence: None)
  Receive Date: 20230427
  Receipt Date: 20230427
  Transmission Date: 20230721
  Serious: No
  Sender: FDA-Public Use
  Company Number: None

PATIENT
  Sex: 0

DRUGS (2)
  1. OCREVUS [Suspect]
     Active Substance: OCRELIZUMAB
  2. KESIMPTA [Suspect]
     Active Substance: OFATUMUMAB

REACTIONS (2)
  - Malaise [None]
  - Therapy cessation [None]
